FAERS Safety Report 9701749 (Version 1)
Quarter: 2013Q4

REPORT INFORMATION
  Report Type: Spontaneous
  Country: US (occurrence: None)
  Receive Date: 20131120
  Receipt Date: 20131120
  Transmission Date: 20140711
  Serious: Yes (Other)
  Sender: FDA-Public Use
  Company Number: None

PATIENT
  Age: 28 Year
  Sex: Female
  Weight: 83.92 kg

DRUGS (1)
  1. SERTRALINE [Suspect]
     Indication: PANIC ATTACK
     Dosage: 1 TAB BID BY MOUTH PRN TWICE DAILY TAKEN BY MOUTH
     Route: 048

REACTIONS (7)
  - Aggression [None]
  - Anger [None]
  - Anxiety [None]
  - Suicidal ideation [None]
  - Panic attack [None]
  - Impulsive behaviour [None]
  - Condition aggravated [None]
